FAERS Safety Report 23837057 (Version 6)
Quarter: 2024Q2

REPORT INFORMATION
  Report Type: Report from Study
  Country: US (occurrence: US)
  Receive Date: 20240509
  Receipt Date: 20240628
  Transmission Date: 20240716
  Serious: Yes (Death, Other)
  Sender: FDA-Public Use
  Company Number: US-AGIOS-2404US03738

PATIENT
  Age: 61 Year
  Sex: Male

DRUGS (1)
  1. MITAPIVAT [Suspect]
     Active Substance: MITAPIVAT
     Indication: Pyruvate kinase deficiency anaemia
     Dosage: 50 MILLIGRAM, BID
     Route: 065
     Dates: start: 20220818

REACTIONS (8)
  - Neoplasm malignant [Fatal]
  - Hepatic cancer [Unknown]
  - Fall [Unknown]
  - Shoulder deformity [Unknown]
  - Mass [Unknown]
  - Haemoglobin decreased [Unknown]
  - Limb injury [Unknown]
  - Malaise [Unknown]

NARRATIVE: CASE EVENT DATE: 20240606
